FAERS Safety Report 7450746-6 (Version None)
Quarter: 2011Q2

REPORT INFORMATION
  Report Type: 
  Country: None (occurrence: None)
  Receive Date: 20110502
  Receipt Date: 20101214
  Transmission Date: 20111010
  Serious: Yes (Hospitalization, Other)
  Sender: FDA-Public Use
  Company Number: US-BAYER-201031345NA

PATIENT
  Age: 36 Year
  Sex: Female
  Weight: 95.238 kg

DRUGS (10)
  1. PROPOXYPHENE NAPSYLATE W/PARACETAMOL [Concomitant]
     Indication: PAIN
     Dosage: UNK
     Route: 048
     Dates: start: 20080824
  2. FLUCONAZOLE [Concomitant]
     Indication: ANTIBIOTIC THERAPY
     Dosage: UNK
     Route: 048
     Dates: start: 20080527
  3. ALPRAZOLAM [Concomitant]
     Indication: ANXIETY
     Dosage: UNK
     Route: 048
     Dates: start: 20080821
  4. AZITHROMYCIN [Concomitant]
     Indication: ANTIBIOTIC THERAPY
     Dosage: UNK
     Route: 048
     Dates: start: 20080824
  5. PRILOSEC [Concomitant]
  6. BENADRYL [Concomitant]
  7. YAZ [Suspect]
     Indication: MENSTRUAL DISORDER
     Dosage: UNK UNK, UNK
     Route: 065
     Dates: start: 20080716, end: 20080826
  8. AMOXICILLIN W/CLAVULANIC ACID [Concomitant]
     Indication: ANTIBIOTIC THERAPY
     Dosage: UNK
     Route: 048
     Dates: start: 20080517
  9. PHENTERMINE [Concomitant]
     Indication: APPETITE DISORDER
     Dosage: UNK
     Route: 048
     Dates: start: 20080818
  10. SERTRALINE [Concomitant]
     Indication: DEPRESSION
     Dosage: UNK
     Route: 048
     Dates: start: 20080820

REACTIONS (3)
  - PULMONARY INFARCTION [None]
  - PULMONARY EMBOLISM [None]
  - DEPRESSION [None]
